FAERS Safety Report 5723653-4 (Version None)
Quarter: 2008Q2

REPORT INFORMATION
  Report Type: 
  Country: None (occurrence: None)
  Receive Date: 20080430
  Receipt Date: 20080418
  Transmission Date: 20081010
  Serious: Yes (Hospitalization, Other)
  Sender: FDA-Public Use
  Company Number: GB-JNJFOC-20080405520

PATIENT
  Age: 33 Year
  Sex: Female
  Weight: 91.5 kg

DRUGS (17)
  1. INFLIXIMAB [Suspect]
     Indication: CROHN'S DISEASE
     Route: 042
  2. PREDNISOLONE [Concomitant]
     Indication: CROHN'S DISEASE
  3. METHOTREXATE [Concomitant]
     Indication: CROHN'S DISEASE
  4. CITALOPRAM HYDROBROMIDE [Concomitant]
  5. TRAMADOL HCL [Concomitant]
  6. PROCHLORPERAZINE [Concomitant]
  7. FENTANYL CITRATE [Concomitant]
     Indication: ANAESTHESIA
  8. THIOPENTAL SODIUM [Concomitant]
     Indication: ANAESTHESIA
  9. VECURONIUM BROMIDE [Concomitant]
     Indication: NEUROMUSCULAR BLOCKADE
  10. VECURONIUM BROMIDE [Concomitant]
     Indication: ENDOTRACHEAL INTUBATION
  11. SEVOFLURANE [Concomitant]
     Indication: ANAESTHESIA
  12. HYDROCORTISONE [Concomitant]
     Route: 042
  13. MORPHINE [Concomitant]
     Route: 042
  14. PARACETAMOL [Concomitant]
     Route: 042
  15. GRANISETRON HCL [Concomitant]
     Route: 042
  16. NEOSTIGMINE [Concomitant]
     Indication: NEUROMUSCULAR BLOCKADE REVERSAL
     Route: 042
  17. GLYCOPYRROLATE [Concomitant]
     Indication: NEUROMUSCULAR BLOCKADE REVERSAL

REACTIONS (2)
  - INTESTINAL OBSTRUCTION [None]
  - REVERSIBLE POSTERIOR LEUKOENCEPHALOPATHY SYNDROME [None]
